FAERS Safety Report 25929733 (Version 1)
Quarter: 2025Q4

REPORT INFORMATION
  Report Type: Spontaneous
  Country: CN (occurrence: CN)
  Receive Date: 20251016
  Receipt Date: 20251016
  Transmission Date: 20260118
  Serious: Yes (Hospitalization, Other)
  Sender: BAXTER
  Company Number: None

PATIENT
  Age: 53 Year
  Sex: Female
  Weight: 68 kg

DRUGS (5)
  1. IFOSFAMIDE [Suspect]
     Active Substance: IFOSFAMIDE
     Indication: Soft tissue sarcoma
     Dosage: 2.5 G, QD (CENTRAL VEIN)1-D5
     Route: 041
     Dates: start: 20250929, end: 20251003
  2. DOXORUBICIN HYDROCHLORIDE [Suspect]
     Active Substance: DOXORUBICIN HYDROCHLORIDE
     Indication: Soft tissue sarcoma
     Dosage: 20 MG, QD (CENTRAL VEIN) D1-D3
     Route: 041
     Dates: start: 20250929, end: 20251001
  3. SODIUM CHLORIDE [Suspect]
     Active Substance: SODIUM CHLORIDE
     Indication: Medication dilution
     Dosage: 1000 ML, QD WITH IFOSFAMIDE (CENTRAL VEIN) D1-D5
     Route: 041
     Dates: start: 20250929, end: 20251003
  4. DEXTROSE [Suspect]
     Active Substance: DEXTROSE MONOHYDRATE
     Indication: Medication dilution
     Dosage: 250 ML, QD WITH DOXORUBICIN(CENTRAL VEIN) D1-D3
     Route: 041
     Dates: start: 20250929, end: 20251001
  5. STERILE WATER [Suspect]
     Active Substance: WATER
     Indication: Medication dilution
     Dosage: 15 ML, QD WITH IFOSFAMIDE (CENTRAL VEIN)D1-D5
     Route: 041
     Dates: start: 20250929, end: 20251003

REACTIONS (4)
  - Quality of life decreased [Unknown]
  - Nausea [Recovering/Resolving]
  - Vomiting [Recovering/Resolving]
  - Decreased appetite [Recovering/Resolving]

NARRATIVE: CASE EVENT DATE: 20250929
